FAERS Safety Report 24193240 (Version 1)
Quarter: 2024Q3

REPORT INFORMATION
  Report Type: Spontaneous
  Country: PK (occurrence: PK)
  Receive Date: 20240809
  Receipt Date: 20240809
  Transmission Date: 20241017
  Serious: Yes (Other)
  Sender: ROCHE
  Company Number: PK-ROCHE-10000047397

PATIENT
  Age: 40 Year
  Sex: Male

DRUGS (8)
  1. AVASTIN [Suspect]
     Active Substance: BEVACIZUMAB
     Indication: Hepatocellular carcinoma
     Route: 065
     Dates: start: 201902
  2. ATEZOLIZUMAB [Suspect]
     Active Substance: ATEZOLIZUMAB
     Indication: Hepatocellular carcinoma
     Route: 065
     Dates: start: 201902
  3. CABOZANTINIB [Concomitant]
     Active Substance: CABOZANTINIB
     Dates: start: 202007
  4. REGORAFENIB [Concomitant]
     Active Substance: REGORAFENIB
  5. RAMUCIRUMAB [Concomitant]
     Active Substance: RAMUCIRUMAB
  6. NIVOLUMAB [Concomitant]
     Active Substance: NIVOLUMAB
  7. PEMBROLIZUMAB [Concomitant]
     Active Substance: PEMBROLIZUMAB
  8. SORAFENIB [Concomitant]
     Active Substance: SORAFENIB
     Dates: start: 201902

REACTIONS (7)
  - Haemorrhage [Unknown]
  - Hypothyroidism [Unknown]
  - Proteinuria [Unknown]
  - Abdominal pain upper [Unknown]
  - Hypotension [Unknown]
  - Nausea [Unknown]
  - Disease progression [Unknown]

NARRATIVE: CASE EVENT DATE: 20200501
